FAERS Safety Report 4884025-8 (Version None)
Quarter: 2006Q1

REPORT INFORMATION
  Report Type: 
  Country: None (occurrence: None)
  Receive Date: 20060117
  Receipt Date: 20060109
  Transmission Date: 20060701
  Serious: Yes (Life-Threatening, Hospitalization)
  Sender: FDA-Public Use
  Company Number: MK200601-0097-1

PATIENT
  Age: 5 Week
  Sex: Female
  Weight: 3.8 kg

DRUGS (2)
  1. METHADOSE [Suspect]
  2. VICODIN [Suspect]

REACTIONS (6)
  - APNOEA [None]
  - COUGH [None]
  - CYANOSIS [None]
  - DRUG EXPOSURE VIA BREAST MILK [None]
  - IRRITABILITY [None]
  - RHINORRHOEA [None]
